FAERS Safety Report 23381885 (Version 1)
Quarter: 2024Q1

REPORT INFORMATION
  Report Type: Spontaneous
  Country: HR (occurrence: HR)
  Receive Date: 20240109
  Receipt Date: 20240109
  Transmission Date: 20240409
  Serious: Yes (Other)
  Sender: FDA-Public Use
  Company Number: HR-TEVA-VS-3140061

PATIENT
  Age: 53 Year

DRUGS (2)
  1. PACLITAXEL [Suspect]
     Active Substance: PACLITAXEL
     Indication: Adenocarcinoma pancreas
     Dosage: RECEIVED ONLY ONE CYCLE
     Route: 065
  2. GEMCITABINE [Suspect]
     Active Substance: GEMCITABINE
     Indication: Adenocarcinoma pancreas
     Dosage: RECEIVED ONLY ONE CYCLE
     Route: 065

REACTIONS (3)
  - Pancytopenia [Unknown]
  - Ascites [Unknown]
  - Adenocarcinoma pancreas [Unknown]
